FAERS Safety Report 4389138-5 (Version None)
Quarter: 2004Q3

REPORT INFORMATION
  Report Type: 
  Country: None (occurrence: None)
  Receive Date: 20040702
  Receipt Date: 20030909
  Transmission Date: 20050211
  Serious: No
  Sender: FDA-Public Use
  Company Number: US-GLAXOSMITHKLINE-A0425159A

PATIENT
  Age: 50 Year
  Sex: Male

DRUGS (4)
  1. PARNATE [Suspect]
     Indication: ILL-DEFINED DISORDER
     Dosage: 60MG PER DAY
     Route: 048
  2. ZOCOR [Concomitant]
  3. PRINZIDE [Concomitant]
  4. PIROXICAM [Concomitant]

REACTIONS (2)
  - BLOOD THYROID STIMULATING HORMONE INCREASED [None]
  - FEELING JITTERY [None]
